FAERS Safety Report 10209130 (Version 2)
Quarter: 2014Q2

REPORT INFORMATION
  Report Type: Report from Study
  Country: US (occurrence: US)
  Receive Date: 20140530
  Receipt Date: 20140624
  Transmission Date: 20141212
  Serious: Yes (Hospitalization)
  Sender: FDA-Public Use
  Company Number: US-ACTELION-A-NJ2014-99467

PATIENT
  Age: 22 Month
  Sex: Male

DRUGS (1)
  1. TRACLEER [Suspect]
     Indication: PULMONARY ARTERIAL HYPERTENSION
     Dosage: 7.8 MG, BID
     Route: 048
     Dates: start: 201401

REACTIONS (2)
  - Lower limb fracture [Recovering/Resolving]
  - Peripheral swelling [Recovering/Resolving]
